FAERS Safety Report 13656243 (Version 5)
Quarter: 2019Q3

REPORT INFORMATION
  Report Type: Report from Study
  Country: AR (occurrence: AR)
  Receive Date: 20170615
  Receipt Date: 20190919
  Transmission Date: 20191004
  Serious: Yes (Hospitalization)
  Sender: FDA-Public Use
  Company Number: PHHY2017AR006786

PATIENT
  Age: 47 Year
  Sex: Male

DRUGS (3)
  1. COSENTYX [Suspect]
     Active Substance: SECUKINUMAB
     Dosage: 300 MG, UNK
     Route: 065
     Dates: start: 201705, end: 201906
  2. COSENTYX [Suspect]
     Active Substance: SECUKINUMAB
     Dosage: 300 MG, QMO
     Route: 065
     Dates: start: 201704
  3. COSENTYX [Suspect]
     Active Substance: SECUKINUMAB
     Indication: PSORIASIS
     Dosage: 300 MG, QMO
     Route: 065
     Dates: start: 201202

REACTIONS (10)
  - Melanoderma [Recovered/Resolved]
  - Skin haemorrhage [Recovering/Resolving]
  - Psoriasis [Recovering/Resolving]
  - Therapeutic product effect decreased [Recovered/Resolved]
  - Skin atrophy [Recovering/Resolving]
  - Decreased immune responsiveness [Recovering/Resolving]
  - Inappropriate schedule of product administration [Unknown]
  - Body temperature decreased [Recovering/Resolving]
  - Pustular psoriasis [Recovered/Resolved]
  - Skin disorder [Recovering/Resolving]

NARRATIVE: CASE EVENT DATE: 201202
